FAERS Safety Report 8453641-9 (Version None)
Quarter: 2012Q2

REPORT INFORMATION
  Report Type: 
  Country: None (occurrence: None)
  Receive Date: 20120620
  Receipt Date: 20120612
  Transmission Date: 20120825
  Serious: Yes (Other)
  Sender: FDA-Public Use
  Company Number: US-BRISTOL-MYERS SQUIBB COMPANY-16679771

PATIENT
  Age: 69 Year
  Sex: Male
  Weight: 81 kg

DRUGS (1)
  1. IPILIMUMAB [Suspect]
     Indication: MALIGNANT MELANOMA
     Dosage: LAST DOSE ON 11MAY2012
     Route: 042
     Dates: start: 20120309

REACTIONS (1)
  - LIPASE INCREASED [None]
